FAERS Safety Report 14200221 (Version 2)
Quarter: 2017Q4

REPORT INFORMATION
  Report Type: Spontaneous
  Country: CH (occurrence: CH)
  Receive Date: 20171117
  Receipt Date: 20171205
  Transmission Date: 20180321
  Serious: Yes (Other)
  Sender: FDA-Public Use
  Company Number: CH-PFIZER INC-2017433796

PATIENT
  Age: 55 Year
  Sex: Female
  Weight: 68 kg

DRUGS (9)
  1. FASLODEX [Suspect]
     Active Substance: FULVESTRANT
     Indication: BREAST CANCER
     Dosage: UNK UNK, CYCLIC
     Route: 030
     Dates: start: 201409, end: 201504
  2. IBRANCE [Suspect]
     Active Substance: PALBOCICLIB
     Dosage: 100 MG, CYCLIC, FROM THE SECOND CYCLE
     Route: 048
     Dates: start: 20171019
  3. FASLODEX [Suspect]
     Active Substance: FULVESTRANT
     Dosage: UNK
     Route: 030
     Dates: start: 201504, end: 201511
  4. CYCLOPHOSPHAMIDE. [Suspect]
     Active Substance: CYCLOPHOSPHAMIDE
     Indication: BREAST CANCER
     Dosage: UNK UNK, CYCLIC
     Dates: start: 201504, end: 201511
  5. METHOTREXATE SODIUM. [Suspect]
     Active Substance: METHOTREXATE SODIUM
     Indication: BREAST CANCER
     Dosage: UNK
     Dates: start: 201504, end: 201511
  6. CAPECITABINE. [Suspect]
     Active Substance: CAPECITABINE
     Indication: BREAST CANCER
     Dosage: UNK
     Dates: start: 201511, end: 201709
  7. FASLODEX [Suspect]
     Active Substance: FULVESTRANT
     Dosage: UNK UNK, CYCLIC
     Route: 030
     Dates: start: 201511, end: 201709
  8. IBRANCE [Suspect]
     Active Substance: PALBOCICLIB
     Indication: BREAST CANCER METASTATIC
     Dosage: 125 MG, CYCLIC, STOP OF THE FIRST CYCLE AT 125MG DAILY AFTER 14DAYS (D1=21SEP2017)
     Route: 048
     Dates: start: 20170921, end: 20171005
  9. XGEVA [Concomitant]
     Active Substance: DENOSUMAB
     Indication: BREAST CANCER
     Dosage: UNK
     Dates: start: 201410

REACTIONS (8)
  - Dysgeusia [Recovered/Resolved]
  - Skin disorder [Unknown]
  - Carcinoembryonic antigen increased [Unknown]
  - Lip dry [Unknown]
  - Mucosal inflammation [Recovering/Resolving]
  - Oral herpes [Unknown]
  - Neutropenia [Recovered/Resolved]
  - Leukopenia [Unknown]

NARRATIVE: CASE EVENT DATE: 20171005
